FAERS Safety Report 15713969 (Version 3)
Quarter: 2019Q1

REPORT INFORMATION
  Report Type: Report from Study
  Country: None (occurrence: LB)
  Receive Date: 20181212
  Receipt Date: 20190225
  Transmission Date: 20190417
  Serious: Yes (Hospitalization)
  Sender: FDA-Public Use
  Company Number: LB-ABBVIE-18K-093-2587403-00

PATIENT
  Age: 18 Year
  Sex: Male
  Weight: 49 kg

DRUGS (6)
  1. CORTISONE [Concomitant]
     Active Substance: CORTISONE\HYDROCORTISONE
     Indication: PRODUCT USED FOR UNKNOWN INDICATION
     Dosage: 25MG TAPERED GRADUALLY
  2. HUMIRA [Suspect]
     Active Substance: ADALIMUMAB
     Route: 058
     Dates: start: 201902
  3. HUMIRA [Suspect]
     Active Substance: ADALIMUMAB
     Dosage: LOADING DOSE
     Route: 058
     Dates: start: 20181201, end: 20181201
  4. HUMIRA [Suspect]
     Active Substance: ADALIMUMAB
     Dosage: STOPPED IN END OF DECEMBER
     Route: 058
     Dates: start: 20181216, end: 201812
  5. CALCIUM [Concomitant]
     Active Substance: CALCIUM
     Indication: PRODUCT USED FOR UNKNOWN INDICATION
  6. HUMIRA [Suspect]
     Active Substance: ADALIMUMAB
     Indication: CROHN^S DISEASE
     Dosage: LOADING DOSE
     Route: 058
     Dates: start: 20181117, end: 20181117

REACTIONS (2)
  - Chills [Recovered/Resolved]
  - Typhoid fever [Recovered/Resolved]

NARRATIVE: CASE EVENT DATE: 20181208
